FAERS Safety Report 23642472 (Version 1)
Quarter: 2024Q1

REPORT INFORMATION
  Report Type: Spontaneous
  Country: FR (occurrence: FR)
  Receive Date: 20240318
  Receipt Date: 20240318
  Transmission Date: 20240410
  Serious: Yes (Life-Threatening, Other)
  Sender: FDA-Public Use
  Company Number: FR-CELLTRION INC.-2024FR006168

PATIENT

DRUGS (7)
  1. INFLIXIMAB [Suspect]
     Active Substance: INFLIXIMAB
     Indication: Still^s disease
     Dosage: 75 MILLIGRAM
     Route: 051
     Dates: start: 20231214, end: 20231214
  2. INFLIXIMAB [Suspect]
     Active Substance: INFLIXIMAB
     Dosage: 75 MILLIGRAM
     Route: 051
     Dates: start: 20231102, end: 20231102
  3. INFLIXIMAB [Suspect]
     Active Substance: INFLIXIMAB
     Dosage: 75 MILLIGRAM
     Route: 051
     Dates: start: 20230725, end: 20230725
  4. INFLIXIMAB [Suspect]
     Active Substance: INFLIXIMAB
     Dosage: 75 MILLIGRAM
     Route: 051
     Dates: start: 20230808, end: 20230808
  5. INFLIXIMAB [Suspect]
     Active Substance: INFLIXIMAB
     Dosage: 75 MILLIGRAM
     Route: 051
     Dates: start: 20231005, end: 20231005
  6. INFLIXIMAB [Suspect]
     Active Substance: INFLIXIMAB
     Dosage: 75 MILLIGRAM
     Route: 051
     Dates: start: 20230906, end: 20230906
  7. METHOTREXATE [Concomitant]
     Active Substance: METHOTREXATE
     Dosage: 10 MILLIGRAM EVERY 15 DAY
     Dates: start: 20221216

REACTIONS (2)
  - Anaphylactoid shock [Recovered/Resolved]
  - Intentional product use issue [Unknown]

NARRATIVE: CASE EVENT DATE: 20231214
